FAERS Safety Report 7391192-3 (Version None)
Quarter: 2011Q2

REPORT INFORMATION
  Report Type: 
  Country: None (occurrence: None)
  Receive Date: 20110404
  Receipt Date: 20100630
  Transmission Date: 20111010
  Serious: Yes (Other)
  Sender: FDA-Public Use
  Company Number: US-PFIZER INC-2010082162

PATIENT
  Sex: Male
  Weight: 82.54 kg

DRUGS (1)
  1. ZOLOFT [Suspect]
     Indication: DEPRESSION
     Dosage: 50 MG DAILY
     Route: 048
     Dates: start: 20100101

REACTIONS (3)
  - ACCIDENTAL OVERDOSE [None]
  - YAWNING [None]
  - TREMOR [None]
